FAERS Safety Report 13649735 (Version 2)
Quarter: 2017Q3

REPORT INFORMATION
  Report Type: Spontaneous
  Country: US (occurrence: US)
  Receive Date: 20170614
  Receipt Date: 20170804
  Transmission Date: 20171127
  Serious: Yes (Other)
  Sender: FDA-Public Use
  Company Number: US-ROCHE-1949416

PATIENT
  Age: 60 Year
  Sex: Female

DRUGS (3)
  1. XOLAIR [Suspect]
     Active Substance: OMALIZUMAB
     Indication: URTICARIA
     Route: 058
     Dates: start: 201609, end: 201610
  2. PLAQUENIL [Concomitant]
     Active Substance: HYDROXYCHLOROQUINE SULFATE
     Dosage: 1 WEEK?FOR THREE WEEKS
     Route: 065
     Dates: start: 2017
  3. PLAQUENIL [Concomitant]
     Active Substance: HYDROXYCHLOROQUINE SULFATE
     Route: 065
     Dates: start: 2017

REACTIONS (11)
  - Hypoaesthesia [Recovering/Resolving]
  - Pain [Not Recovered/Not Resolved]
  - Weight increased [Not Recovered/Not Resolved]
  - Chest pain [Recovered/Resolved]
  - Infectious mononucleosis [Unknown]
  - Rash [Recovered/Resolved]
  - Systemic lupus erythematosus [Not Recovered/Not Resolved]
  - Swelling [Not Recovered/Not Resolved]
  - Herpes zoster [Recovering/Resolving]
  - Influenza like illness [Recovered/Resolved]
  - Pain in extremity [Recovering/Resolving]

NARRATIVE: CASE EVENT DATE: 201609
